FAERS Safety Report 9895027 (Version 2)
Quarter: 2014Q1

REPORT INFORMATION
  Report Type: Spontaneous
  Country: US (occurrence: US)
  Receive Date: 20140213
  Receipt Date: 20140213
  Transmission Date: 20141002
  Serious: No
  Sender: FDA-Public Use
  Company Number: US-BRISTOL-MYERS SQUIBB COMPANY-17339821

PATIENT
  Age: 58 Year
  Sex: Female
  Weight: 77.1 kg

DRUGS (13)
  1. ABATACEPT SUBQ INJECTION 125MG/ML [Suspect]
     Indication: RHEUMATOID ARTHRITIS
     Dosage: LAST INJECTION WAS ON 30JAN2013 RESTARTED ON:30JAN2013
     Route: 058
  2. PREMARIN [Concomitant]
     Dosage: TAB
  3. FOLIC ACID [Concomitant]
     Dosage: TAB
  4. SYNTHROID [Concomitant]
     Dosage: TAB
  5. BUPROPION [Concomitant]
  6. TRIAMTERENE + HCTZ [Concomitant]
     Dosage: 1DF:50MG-75MG
  7. NEXIUM [Concomitant]
     Dosage: CAP
  8. LIPITOR [Concomitant]
     Dosage: TAB
  9. KLOR-CON [Concomitant]
     Dosage: TAB
  10. LUNESTA [Concomitant]
  11. PREDNISONE [Concomitant]
  12. CELEBREX [Concomitant]
     Dosage: CAP
  13. NORCO [Concomitant]
     Indication: PAIN
     Dosage: 1DF:325MG-5MG TAB

REACTIONS (4)
  - Local swelling [Unknown]
  - Nasopharyngitis [Unknown]
  - Sinusitis [Unknown]
  - Dyspnoea [Unknown]
